FAERS Safety Report 8260057-7 (Version None)
Quarter: 2012Q2

REPORT INFORMATION
  Report Type: 
  Country: None (occurrence: None)
  Receive Date: 20120404
  Receipt Date: 20120403
  Transmission Date: 20120825
  Serious: Yes (Other)
  Sender: FDA-Public Use
  Company Number: US-BRACCO-007732

PATIENT
  Age: 43 Year
  Sex: Male
  Weight: 79 kg

DRUGS (4)
  1. ASPIRIN [Concomitant]
  2. ISOVUE-370 [Suspect]
     Indication: CATHETERISATION CARDIAC
     Route: 013
     Dates: start: 20120201, end: 20120201
  3. ISOVUE-370 [Suspect]
     Indication: CARDIAC STRESS TEST ABNORMAL
     Route: 013
     Dates: start: 20120201, end: 20120201
  4. THEOPHYLLINE [Concomitant]

REACTIONS (1)
  - ATRIOVENTRICULAR BLOCK [None]
